FAERS Safety Report 4871184-6 (Version None)
Quarter: 2005Q4

REPORT INFORMATION
  Report Type: 
  Country: None (occurrence: None)
  Receive Date: 20051229
  Receipt Date: 20051213
  Transmission Date: 20060501
  Serious: Yes (Other)
  Sender: FDA-Public Use
  Company Number: US200511002117

PATIENT
  Age: 41 Year
  Sex: Female

DRUGS (2)
  1. FORTEO [Suspect]
     Dates: start: 20041001
  2. FORTEO [Concomitant]

REACTIONS (2)
  - FALL [None]
  - FEMUR FRACTURE [None]
